FAERS Safety Report 9207027 (Version 1)
Quarter: 2013Q2

REPORT INFORMATION
  Report Type: Spontaneous
  Country: US (occurrence: None)
  Receive Date: 20130402
  Receipt Date: 20130402
  Transmission Date: 20140414
  Serious: Yes (Other)
  Sender: FDA-Public Use
  Company Number: None

PATIENT
  Sex: Female
  Weight: 66 kg

DRUGS (2)
  1. AVEENO STRESS RELIEF MOIST LOTION [Suspect]
     Indication: DRY SKIN PROPHYLAXIS
     Dosage: ENOUGH, FEW TIMES
     Route: 061
     Dates: start: 201302
  2. SINGULAIR [Concomitant]

REACTIONS (1)
  - Asthma [None]
